FAERS Safety Report 24750611 (Version 1)
Quarter: 2024Q4

REPORT INFORMATION
  Report Type: Report from Study
  Country: NL (occurrence: NL)
  Receive Date: 20241218
  Receipt Date: 20241218
  Transmission Date: 20250115
  Serious: Yes (Hospitalization)
  Sender: ABBVIE
  Company Number: NL-ABBVIE-6052121

PATIENT
  Age: 86 Year
  Sex: Male

DRUGS (7)
  1. CARBIDOPA\LEVODOPA [Suspect]
     Active Substance: CARBIDOPA\LEVODOPA
     Indication: Parkinson^s disease
     Route: 050
     Dates: start: 20160114
  2. CARBIDOPA\LEVODOPA [Suspect]
     Active Substance: CARBIDOPA\LEVODOPA
     Dosage: MORNING DOSAGE (ML):- 7.7, CONTINUOUS DOSING (ML/H):- 3.8, EXTRA DOSAGE (ML):- 3.00, THERAPY DURA...
     Route: 050
     Dates: start: 20231017, end: 20231017
  3. CARBIDOPA\LEVODOPA [Suspect]
     Active Substance: CARBIDOPA\LEVODOPA
     Dosage: MORNING DOSAGE (ML):- 7.7, CONTINUOUS DOSING (ML/H):- 3.8, EXTRA DOSAGE (ML):- 3.00, THERAPY DURA...
     Route: 050
     Dates: start: 20231116, end: 20231116
  4. CARBIDOPA\LEVODOPA [Suspect]
     Active Substance: CARBIDOPA\LEVODOPA
     Dosage: MORNING DOSAGE (ML):- 7.7, CONTINUOUS DOSING (ML/H):- 3.8, EXTRA DOSAGE (ML):- 3.00, THERAPY DURA...
     Route: 050
     Dates: start: 20240306, end: 20240306
  5. CARBIDOPA\LEVODOPA [Suspect]
     Active Substance: CARBIDOPA\LEVODOPA
     Dosage: MORNING DOSAGE (ML):- 7.7, CONTINUOUS DOSING (ML/H):- 3.8, EXTRA DOSAGE (ML):- 3.00, THERAPY DURA...
     Route: 050
     Dates: start: 20240306
  6. POLYETHYLENE GLYCOLS [Concomitant]
     Active Substance: POLYETHYLENE GLYCOLS
     Indication: Abnormal faeces
     Dosage: DOSE /FREQUENCY:-UNKNOWN
     Route: 048
  7. Terracortril [Concomitant]
     Indication: Fibroma

REACTIONS (4)
  - Fall [Recovered/Resolved]
  - Dyskinesia [Not Recovered/Not Resolved]
  - Confusional state [Recovered/Resolved]
  - Fall [Not Recovered/Not Resolved]

NARRATIVE: CASE EVENT DATE: 20241105
